FAERS Safety Report 9513836 (Version 1)
Quarter: 2013Q3

REPORT INFORMATION
  Report Type: Spontaneous
  Country: ZA (occurrence: ZA)
  Receive Date: 20130910
  Receipt Date: 20130910
  Transmission Date: 20140515
  Serious: Yes (Hospitalization)
  Sender: FDA-Public Use
  Company Number: ZA-MERCK-1309ZAF003457

PATIENT
  Sex: Female

DRUGS (2)
  1. GARDASIL [Suspect]
     Indication: PROPHYLAXIS
  2. NUVARING [Suspect]
     Indication: MENORRHAGIA

REACTIONS (4)
  - Neuralgic amyotrophy [Unknown]
  - Local swelling [Recovering/Resolving]
  - Pyrexia [Unknown]
  - Off label use [Unknown]
